FAERS Safety Report 7389452-5 (Version None)
Quarter: 2011Q2

REPORT INFORMATION
  Report Type: 
  Country: None (occurrence: None)
  Receive Date: 20110401
  Receipt Date: 20110328
  Transmission Date: 20111010
  Serious: Yes (Other)
  Sender: FDA-Public Use
  Company Number: CH-BRISTOL-MYERS SQUIBB COMPANY-14598148

PATIENT
  Age: 35 Year
  Sex: Female
  Weight: 54 kg

DRUGS (5)
  1. REYATAZ [Suspect]
     Indication: HIV INFECTION
     Dosage: ABOUT 1 YEAR. FREQUENCY: 1 X
     Route: 048
     Dates: start: 20070901, end: 20090422
  2. NORVIR [Suspect]
     Indication: HIV INFECTION
     Dosage: FREQUENCY: 1 X
     Route: 048
  3. COMBIVIR [Suspect]
     Indication: HIV INFECTION
     Route: 048
     Dates: start: 20090422
  4. KIVEXA [Suspect]
     Indication: HIV INFECTION
     Dosage: 1 DOSAGE FORM = 600/300MG. FREQUENCY: 1 X
     Route: 048
  5. KALETRA [Suspect]
     Indication: HIV INFECTION
     Dosage: 1 DF = 200/50MG,2-0-2 TABS
     Route: 048
     Dates: start: 20090422

REACTIONS (4)
  - AMNIORRHEXIS [None]
  - PREGNANCY [None]
  - LIVE BIRTH [None]
  - CAESAREAN SECTION [None]
